FAERS Safety Report 20706802 (Version 1)
Quarter: 2022Q2

REPORT INFORMATION
  Report Type: Spontaneous
  Country: CN (occurrence: CN)
  Receive Date: 20220413
  Receipt Date: 20220413
  Transmission Date: 20220720
  Serious: Yes (Other)
  Sender: FDA-Public Use
  Company Number: CN-SA-SAC20220412001507

PATIENT
  Age: 25 Year
  Sex: Male
  Weight: 60 kg

DRUGS (5)
  1. VALPROIC ACID [Suspect]
     Active Substance: VALPROIC ACID
     Indication: Epilepsy
     Route: 048
     Dates: start: 20220209, end: 20220309
  2. LEFLUNOMIDE [Suspect]
     Active Substance: LEFLUNOMIDE
     Indication: Antiinflammatory therapy
     Route: 048
     Dates: start: 20220209, end: 20220309
  3. LAMOTRIGINE [Suspect]
     Active Substance: LAMOTRIGINE
     Indication: Epilepsy
     Route: 048
     Dates: start: 20220209, end: 20220309
  4. GLUCUROLACTONE [Concomitant]
     Active Substance: GLUCUROLACTONE
  5. PHOSPHOLIPID [Concomitant]
     Active Substance: PHOSPHOLIPID

REACTIONS (2)
  - Hepatic function abnormal [Recovering/Resolving]
  - Rash [Recovering/Resolving]

NARRATIVE: CASE EVENT DATE: 20220309
